FAERS Safety Report 21769724 (Version 2)
Quarter: 2023Q1

REPORT INFORMATION
  Report Type: Spontaneous
  Country: IT (occurrence: IT)
  Receive Date: 20221223
  Receipt Date: 20230108
  Transmission Date: 20230417
  Serious: Yes (Other)
  Sender: FDA-Public Use
  Company Number: None

PATIENT
  Age: 64 Year
  Sex: Male
  Weight: 75 kg

DRUGS (1)
  1. ILOPROST [Suspect]
     Active Substance: ILOPROST
     Indication: Product used for unknown indication
     Dosage: 2 NANOGRAM PER KILOGRAM, Q1MIN, ILOPROST IBIGEN 50 MCG /0.5 ML AT A DOSAGE OF 2
     Route: 042
     Dates: start: 20221107, end: 20221108

REACTIONS (2)
  - Atrial fibrillation [Recovered/Resolved]
  - Headache [Recovered/Resolved]

NARRATIVE: CASE EVENT DATE: 20221107
